FAERS Safety Report 6250980-7 (Version None)
Quarter: 2009Q2

REPORT INFORMATION
  Report Type: 
  Country: None (occurrence: None)
  Receive Date: 20090630
  Receipt Date: 20081217
  Transmission Date: 20091009
  Serious: No
  Sender: FDA-Public Use
  Company Number: US-ABBOTT-08P-163-0493513-00

PATIENT
  Sex: Female
  Weight: 72.64 kg

DRUGS (10)
  1. ZEMPLAR [Suspect]
     Indication: VITAMIN D DEFICIENCY
     Route: 048
     Dates: start: 20081021
  2. LISINOPRIL [Concomitant]
     Indication: HYPERTENSION
     Route: 048
  3. DIOVAN [Concomitant]
     Indication: HYPERTENSION
     Route: 048
  4. FUROSEMIDE INTENSOL [Concomitant]
     Indication: DIURETIC THERAPY
     Route: 048
  5. LABETOLOL [Concomitant]
     Indication: HYPERTENSION
     Route: 048
  6. ALPRAZOLAM [Concomitant]
     Indication: ANXIOLYTIC THERAPY
     Route: 048
  7. TRAMADOL HCL [Concomitant]
     Indication: PAIN
     Route: 048
  8. LEVOXYL [Concomitant]
     Indication: HYPOTHYROIDISM
     Route: 048
  9. ZOLPIDEM TARTRATE [Concomitant]
     Indication: INSOMNIA
     Route: 048
  10. IRON SHOTS [Concomitant]
     Indication: ANAEMIA

REACTIONS (3)
  - ARTHRALGIA [None]
  - GAIT DISTURBANCE [None]
  - PAIN IN EXTREMITY [None]
